FAERS Safety Report 6928165-8 (Version None)
Quarter: 2010Q3

REPORT INFORMATION
  Report Type: 
  Country: None (occurrence: None)
  Receive Date: 20100817
  Receipt Date: 20100806
  Transmission Date: 20110219
  Serious: Yes (Hospitalization)
  Sender: FDA-Public Use
  Company Number: US-JNJFOC-20100802043

PATIENT
  Age: 30 Year
  Sex: Female

DRUGS (5)
  1. STELARA [Suspect]
     Indication: PSORIASIS
     Dosage: THE PATIENT RECEIVED 2 DOSES, DATES NOT REPORTED.
     Route: 058
  2. METHOTREXATE [Concomitant]
  3. CYCLOSPORINE [Concomitant]
  4. HUMIRA [Concomitant]
  5. RAPTIVA [Concomitant]

REACTIONS (1)
  - PNEUMONIA [None]
